FAERS Safety Report 4955426-4 (Version None)
Quarter: 2006Q1

REPORT INFORMATION
  Report Type: 
  Country: None (occurrence: None)
  Receive Date: 20060322
  Receipt Date: 20060309
  Transmission Date: 20060701
  Serious: Yes (Death, Other)
  Sender: FDA-Public Use
  Company Number: 2006032706

PATIENT
  Age: 53 Year
  Sex: Female

DRUGS (11)
  1. DILANTIN KAPSEAL [Suspect]
     Indication: CONVULSION
     Dosage: 300 MG (100 MG, 3 IN 1 D), ORAL
     Route: 048
     Dates: end: 20050912
  2. HYZAAR [Concomitant]
  3. INDOCIN [Concomitant]
  4. LORTAB [Concomitant]
  5. PREDNISONE [Concomitant]
  6. ALTACE [Concomitant]
  7. PEPCID [Concomitant]
  8. BUMEX [Concomitant]
  9. DOPAMINE [Concomitant]
  10. GLUCOTROL XL [Concomitant]
  11. CIPROFLOXACIN HCL [Concomitant]

REACTIONS (16)
  - ANOXIC ENCEPHALOPATHY [None]
  - BRADYCARDIA [None]
  - BRAIN DAMAGE [None]
  - CARDIAC ARREST [None]
  - EOSINOPHILIA [None]
  - ERYTHEMA MULTIFORME [None]
  - GRAND MAL CONVULSION [None]
  - HYPOTENSION [None]
  - HYPOVOLAEMIA [None]
  - LOSS OF CONSCIOUSNESS [None]
  - MALNUTRITION [None]
  - RENAL FAILURE ACUTE [None]
  - RESPIRATORY ARREST [None]
  - RESPIRATORY FAILURE [None]
  - STATUS EPILEPTICUS [None]
  - STEVENS-JOHNSON SYNDROME [None]
